FAERS Safety Report 23347635 (Version 1)
Quarter: 2023Q4

REPORT INFORMATION
  Report Type: Spontaneous
  Country: JP (occurrence: JP)
  Receive Date: 20231228
  Receipt Date: 20231228
  Transmission Date: 20240110
  Serious: Yes (Other)
  Sender: FDA-Public Use
  Company Number: JP-teijin-202303856_TDV_P_1

PATIENT
  Age: 79 Year
  Sex: Male

DRUGS (1)
  1. ALOGLIPTIN BENZOATE\PIOGLITAZONE HYDROCHLORIDE [Suspect]
     Active Substance: ALOGLIPTIN BENZOATE\PIOGLITAZONE HYDROCHLORIDE
     Indication: Product used for unknown indication
     Dosage: ALOGLIPTIN BENZOATE: 34MG; PIOGLITAZONE HYDROCHLORIDE: 33.06MG
     Route: 048

REACTIONS (1)
  - Internal haemorrhage [Unknown]
